FAERS Safety Report 6148248-2 (Version None)
Quarter: 2009Q2

REPORT INFORMATION
  Report Type: 
  Country: None (occurrence: None)
  Receive Date: 20090408
  Receipt Date: 20090331
  Transmission Date: 20091009
  Serious: Yes (Other)
  Sender: FDA-Public Use
  Company Number: TH-B.I. PHARMACEUTICALS,INC./RIDGEFIELD-2009-BP-04247YA

PATIENT
  Age: 61 Year
  Sex: Male

DRUGS (6)
  1. TAMSULOSIN HCL [Suspect]
     Indication: BENIGN PROSTATIC HYPERPLASIA
     Dosage: .4MG
     Route: 048
     Dates: start: 20080926, end: 20090206
  2. CALCIUM CARBONATE [Concomitant]
  3. ZOLOFT [Concomitant]
  4. SERMION [Concomitant]
  5. CRESTOR [Concomitant]
     Dosage: 10MG
  6. NORVASC [Concomitant]

REACTIONS (3)
  - DYSPNOEA [None]
  - OEDEMA [None]
  - RASH [None]
